FAERS Safety Report 5273555-5 (Version None)
Quarter: 2007Q1

REPORT INFORMATION
  Report Type: 
  Country: None (occurrence: None)
  Receive Date: 20070321
  Receipt Date: 20070321
  Transmission Date: 20070707
  Serious: Yes (Life-Threatening)
  Sender: FDA-Public Use
  Company Number: None

PATIENT
  Age: 53 Year
  Sex: Male
  Weight: 124.3 kg

DRUGS (1)
  1. WARFARIN SODIUM [Suspect]
     Dosage: 10MG QD PO
     Route: 048
     Dates: start: 20070215, end: 20070228

REACTIONS (4)
  - DRUG PRESCRIBING ERROR [None]
  - DYSPHAGIA [None]
  - INTERNATIONAL NORMALISED RATIO INCREASED [None]
  - RENAL FAILURE ACUTE [None]
